FAERS Safety Report 16155274 (Version 4)
Quarter: 2021Q1

REPORT INFORMATION
  Report Type: Spontaneous
  Country: GB (occurrence: GB)
  Receive Date: 20190403
  Receipt Date: 20210222
  Transmission Date: 20210419
  Serious: Yes (Other)
  Sender: FDA-Public Use
  Company Number: GB-CELLTRION INC.-2018GB017823

PATIENT

DRUGS (13)
  1. INFLIXIMAB (UNKNOWN) [Suspect]
     Active Substance: INFLIXIMAB
     Dosage: DOSAGE FORM: LYOPHILIZED POWDER
     Route: 042
  2. MYCOPHENOLATE MOFETIL. [Suspect]
     Active Substance: MYCOPHENOLATE MOFETIL
     Indication: CHRONIC LYMPHOCYTIC INFLAMMATION WITH PONTINE PERIVASCULAR ENHANCEMENT RESPONSIVE TO STEROIDS
     Dosage: UNK
  3. MYCOPHENOLATE MOFETIL. [Concomitant]
     Active Substance: MYCOPHENOLATE MOFETIL
     Indication: CHRONIC LYMPHOCYTIC INFLAMMATION WITH PONTINE PERIVASCULAR ENHANCEMENT RESPONSIVE TO STEROIDS
     Dosage: DOSAGE FORM: UNSPECIFIED
     Route: 065
  4. IMMUNOGLOBULINS [Concomitant]
     Indication: CHRONIC LYMPHOCYTIC INFLAMMATION WITH PONTINE PERIVASCULAR ENHANCEMENT RESPONSIVE TO STEROIDS
     Dosage: UNK
     Route: 042
  5. INFLIXIMAB (UNKNOWN) [Suspect]
     Active Substance: INFLIXIMAB
     Indication: CHRONIC LYMPHOCYTIC INFLAMMATION WITH PONTINE PERIVASCULAR ENHANCEMENT RESPONSIVE TO STEROIDS
     Dosage: UNK, AT EVERY 8 WEEKS
     Route: 042
  6. METHYLPREDNISOLONE. [Suspect]
     Active Substance: METHYLPREDNISOLONE
     Dosage: UNK
     Route: 042
  7. METHYLPREDNISOLONE. [Suspect]
     Active Substance: METHYLPREDNISOLONE
     Dosage: DOSAGE FORM: UNSPECIFIED
     Route: 042
  8. PREDNISOLONE. [Suspect]
     Active Substance: PREDNISOLONE
     Indication: CHRONIC LYMPHOCYTIC INFLAMMATION WITH PONTINE PERIVASCULAR ENHANCEMENT RESPONSIVE TO STEROIDS
     Dosage: UNK
     Route: 048
  9. METHYLPREDNISOLONE. [Suspect]
     Active Substance: METHYLPREDNISOLONE
     Indication: CHRONIC LYMPHOCYTIC INFLAMMATION WITH PONTINE PERIVASCULAR ENHANCEMENT RESPONSIVE TO STEROIDS
     Dosage: UNK (INFUSIONS EVERY 8 WEEKS)
     Route: 042
  10. MYCOPHENOLATE MOFETIL. [Suspect]
     Active Substance: MYCOPHENOLATE MOFETIL
     Indication: CHRONIC LYMPHOCYTIC INFLAMMATION WITH PONTINE PERIVASCULAR ENHANCEMENT RESPONSIVE TO STEROIDS
     Dosage: UNK
  11. PREDNISOLONE. [Suspect]
     Active Substance: PREDNISOLONE
     Dosage: DOSAGE FORM: UNSPECIFIED
     Route: 048
  12. METHYLPREDNISOLONE. [Suspect]
     Active Substance: METHYLPREDNISOLONE
     Dosage: EVERY 8 WEEKS; DOSAGE FORM: UNSPECIFIED
     Route: 042
  13. IMMUNOGLOBULINS [Concomitant]
     Indication: CHRONIC LYMPHOCYTIC INFLAMMATION WITH PONTINE PERIVASCULAR ENHANCEMENT RESPONSIVE TO STEROIDS
     Dosage: UNK
     Route: 042

REACTIONS (10)
  - Hemiplegia [Unknown]
  - Abnormal behaviour [Unknown]
  - Ataxia [Unknown]
  - Product use in unapproved indication [Unknown]
  - B-cell lymphoma [Recovering/Resolving]
  - Epstein-Barr virus infection [Recovering/Resolving]
  - Bulbar palsy [Unknown]
  - Urinary incontinence [Unknown]
  - Off label use [Unknown]
  - Lethargy [Unknown]
